FAERS Safety Report 6235352-3 (Version None)
Quarter: 2009Q2

REPORT INFORMATION
  Report Type: 
  Country: None (occurrence: None)
  Receive Date: 20090615
  Receipt Date: 20090529
  Transmission Date: 20091009
  Serious: Yes (Hospitalization)
  Sender: FDA-Public Use
  Company Number: 8034938

PATIENT
  Age: 58 Year
  Sex: Female
  Weight: 76.5 kg

DRUGS (6)
  1. CDP870 [Suspect]
     Indication: RHEUMATOID ARTHRITIS
     Dosage: 400 MG 1/2W SC
     Route: 058
     Dates: start: 20050523, end: 20060509
  2. CDP870 [Suspect]
     Indication: RHEUMATOID ARTHRITIS
     Dosage: 400 MG 1/2W SC
     Route: 058
     Dates: start: 20060522, end: 20071119
  3. CDP870 [Suspect]
     Indication: RHEUMATOID ARTHRITIS
     Dosage: 200 MG 1/2W SC
     Route: 058
     Dates: start: 20071203
  4. METHOTREXATE [Concomitant]
  5. FOLIC ACID [Concomitant]
  6. LEVOTHYROXINE SODIUM [Concomitant]

REACTIONS (11)
  - ALLERGY TO ARTHROPOD BITE [None]
  - CHOLECYSTITIS [None]
  - ERYSIPELAS [None]
  - GASTRITIS EROSIVE [None]
  - HYPOTHYROIDISM [None]
  - LEUKOCYTURIA [None]
  - LYMPHADENITIS [None]
  - MEAN CELL VOLUME DECREASED [None]
  - NEPHROLITHIASIS [None]
  - RADIUS FRACTURE [None]
  - ULNA FRACTURE [None]
